FAERS Safety Report 8190654-9 (Version None)
Quarter: 2012Q1

REPORT INFORMATION
  Report Type: 
  Country: None (occurrence: None)
  Receive Date: 20120307
  Receipt Date: 20120229
  Transmission Date: 20120608
  Serious: Yes (Hospitalization, Other)
  Sender: FDA-Public Use
  Company Number: US-ROCHE-1019494

PATIENT
  Sex: Male
  Weight: 86.26 kg

DRUGS (1)
  1. ACCUTANE [Suspect]
     Indication: ACNE
     Dates: start: 19920606, end: 19920816

REACTIONS (7)
  - INTESTINAL OBSTRUCTION [None]
  - DRY SKIN [None]
  - DRY EYE [None]
  - DEPRESSION [None]
  - CROHN'S DISEASE [None]
  - BLOOD CHOLESTEROL INCREASED [None]
  - LIP DRY [None]
